FAERS Safety Report 25445715 (Version 1)
Quarter: 2025Q2

REPORT INFORMATION
  Report Type: Spontaneous
  Country: ES (occurrence: ES)
  Receive Date: 20250617
  Receipt Date: 20250617
  Transmission Date: 20250717
  Serious: Yes (Hospitalization, Other)
  Sender: DR REDDYS
  Company Number: None

PATIENT
  Age: 61 Year
  Sex: Female

DRUGS (13)
  1. DOXORUBICIN [Suspect]
     Active Substance: DOXORUBICIN
     Indication: Invasive lobular breast carcinoma
     Route: 042
     Dates: start: 20250314
  2. CYCLOPHOSPHAMIDE [Suspect]
     Active Substance: CYCLOPHOSPHAMIDE
     Indication: Invasive lobular breast carcinoma
     Route: 042
     Dates: start: 20250314
  3. DEXAMETHASONE [Concomitant]
     Active Substance: DEXAMETHASONE
     Indication: Product used for unknown indication
     Dates: start: 20250314
  4. OMEPRAZOL TEVA- RATIO 20 mg CAPSULAS DURAS GASTRORRESISTENTES EFG, 56 [Concomitant]
     Indication: Product used for unknown indication
     Route: 048
     Dates: start: 20250130
  5. METOCLOPRAMIDA ACCORD 10 MG COMPRIMIDOS EFG, 30 comprimidos [Concomitant]
     Indication: Product used for unknown indication
     Route: 048
     Dates: start: 20250130
  6. RISTFOR 50 MG/1000 MG COMPRIMIDOS RECUBIERTOS CON PELICULA, 56 comprim [Concomitant]
     Indication: Product used for unknown indication
     Route: 048
     Dates: start: 20120504
  7. PIOGLITAZONA CINFA 15 MG COMPRIMIDOS EFG, 56 comprimidos [Concomitant]
     Indication: Product used for unknown indication
     Route: 048
     Dates: start: 20180111
  8. JARDIANCE [Concomitant]
     Active Substance: EMPAGLIFLOZIN
     Indication: Product used for unknown indication
     Route: 048
     Dates: start: 20160415
  9. CAPENON 40 mg/5 mg COMPRIMIDOS RECUBIERTOS CON PELICULA , 28 comprimid [Concomitant]
     Indication: Product used for unknown indication
     Route: 048
     Dates: start: 20120523
  10. ATORVASTATINA TEVA-RATIOPHARM 20 mg COMPRIMIDOS RECUBIERTOS CON PELICU [Concomitant]
     Indication: Product used for unknown indication
     Route: 048
     Dates: start: 20191104
  11. PARACETAMOL KERN PHARMA 1 g COMPRIMIDOS EFG, 40 comprimidos [Concomitant]
     Indication: Product used for unknown indication
     Route: 048
     Dates: start: 20250130
  12. LORAZEPAM NORMON 1 MG COMPRIMIDOS EFG, 50 comprimidos [Concomitant]
     Indication: Product used for unknown indication
     Route: 048
     Dates: start: 20250228
  13. NASONEX 50 MICROGRAMOS SUSPENSION PARA PULVERIZACION NASAL , 1 envase [Concomitant]
     Indication: Product used for unknown indication
     Route: 045
     Dates: start: 20151123

REACTIONS (1)
  - Febrile neutropenia [Recovered/Resolved]

NARRATIVE: CASE EVENT DATE: 20250317
